FAERS Safety Report 8711573 (Version 2)
Quarter: 2013Q4

REPORT INFORMATION
  Report Type: Spontaneous
  Country: US (occurrence: US)
  Receive Date: 20120807
  Receipt Date: 20131030
  Transmission Date: 20140711
  Serious: No
  Sender: FDA-Public Use
  Company Number: US-009507513-1006USA00771

PATIENT
  Age: 70 Year
  Sex: Female

DRUGS (3)
  1. FOSAMAX [Suspect]
     Route: 048
     Dates: start: 2000, end: 200901
  2. FOSAMAX [Suspect]
     Route: 048
     Dates: start: 200901, end: 201004
  3. REBIF [Concomitant]

REACTIONS (6)
  - Tooth disorder [Not Recovered/Not Resolved]
  - Tooth disorder [Not Recovered/Not Resolved]
  - Purulence [Unknown]
  - Lip swelling [Unknown]
  - Oral pain [Unknown]
  - Speech disorder [Unknown]
